FAERS Safety Report 9665631 (Version 1)
Quarter: 2013Q4

REPORT INFORMATION
  Report Type: Other
  Country: DK (occurrence: US)
  Receive Date: 20131104
  Receipt Date: 20131104
  Transmission Date: 20140711
  Serious: Yes (Death, Hospitalization)
  Sender: FDA-Public Use
  Company Number: US-FRI-1000050704

PATIENT
  Age: 45 Year
  Sex: Female

DRUGS (6)
  1. ESCITALOPRAM [Suspect]
     Indication: DEPRESSION
     Dosage: 10 MG
  2. DIHYDROERGOTAMINE [Suspect]
  3. HYDROCODONE [Suspect]
  4. HYDROMORPHONE [Suspect]
  5. TETRAHYDROCANNABINOL [Suspect]
  6. ANTICOAGULATION [Concomitant]
     Indication: HEART VALVE REPLACEMENT

REACTIONS (3)
  - Cerebral vasoconstriction [Fatal]
  - Serotonin syndrome [Fatal]
  - Posterior reversible encephalopathy syndrome [Fatal]
